FAERS Safety Report 24396565 (Version 1)
Quarter: 2024Q4

REPORT INFORMATION
  Report Type: Spontaneous
  Country: US (occurrence: None)
  Receive Date: 20241003
  Receipt Date: 20241003
  Transmission Date: 20250114
  Serious: Yes (Hospitalization)
  Sender: Public
  Company Number: None

PATIENT
  Age: 85 Year
  Sex: Male

DRUGS (13)
  1. JAKAFI [Suspect]
     Active Substance: RUXOLITINIB
     Dosage: FREQUENCY : DAILY;?
     Route: 048
     Dates: start: 20240530
  2. ACETAMINOPHEN [Concomitant]
     Active Substance: ACETAMINOPHEN
     Dates: start: 20240617
  3. ASPIRIN [Concomitant]
     Active Substance: ASPIRIN
     Dates: start: 20240617
  4. FERROUS SULFATE [Concomitant]
     Active Substance: FERROUS SULFATE
     Dates: start: 20240617
  5. FINASTERIDE [Concomitant]
     Active Substance: FINASTERIDE
     Dates: start: 20240617
  6. FUROSEMIDE [Concomitant]
     Active Substance: FUROSEMIDE
     Dates: start: 20240617
  7. GABAPENTIN [Concomitant]
     Active Substance: GABAPENTIN
     Dates: start: 20240617
  8. HYDROCHLOROTHIAZIDE [Concomitant]
     Active Substance: HYDROCHLOROTHIAZIDE
     Dates: start: 20240617
  9. HYDROXYUREA [Concomitant]
     Active Substance: HYDROXYUREA
     Dates: start: 20240617
  10. HYOSCYAMINE [Concomitant]
     Active Substance: HYOSCYAMINE
     Dates: start: 20240617
  11. LACTULOSE [Concomitant]
     Active Substance: LACTULOSE
     Dates: start: 20240617
  12. LOSARTAN POTASSIUM [Concomitant]
     Active Substance: LOSARTAN POTASSIUM
     Dates: start: 20240617
  13. METOPROLOL [Concomitant]
     Active Substance: METOPROLOL
     Dates: start: 20240617

REACTIONS (1)
  - Transient ischaemic attack [None]

NARRATIVE: CASE EVENT DATE: 20241001
